FAERS Safety Report 10951953 (Version 8)
Quarter: 2016Q3

REPORT INFORMATION
  Report Type: Report from Study
  Country: US (occurrence: US)
  Receive Date: 20150325
  Receipt Date: 20160912
  Transmission Date: 20161109
  Serious: Yes (Death, Hospitalization, Other)
  Sender: FDA-Public Use
  Company Number: US-ALEXION PHARMACEUTICALS INC-A201500958

PATIENT
  Sex: Male

DRUGS (3)
  1. SOLIRIS [Suspect]
     Active Substance: ECULIZUMAB
     Indication: HAEMOLYTIC URAEMIC SYNDROME
     Dosage: UNK, Q2W
     Route: 042
  2. SOLIRIS [Suspect]
     Active Substance: ECULIZUMAB
     Dosage: UNK,Q4W
     Route: 042
  3. SOLIRIS [Suspect]
     Active Substance: ECULIZUMAB
     Dosage: UNK,Q3W
     Route: 042

REACTIONS (9)
  - Pyrexia [Unknown]
  - Dyspnoea [Unknown]
  - Lethargy [Unknown]
  - Inappropriate schedule of drug administration [Unknown]
  - Blood creatinine increased [Unknown]
  - Pneumonia [Recovered/Resolved]
  - Graft versus host disease in skin [Fatal]
  - Thrombotic microangiopathy [Unknown]
  - Blood lactate dehydrogenase increased [Unknown]

NARRATIVE: CASE EVENT DATE: 20150323
